FAERS Safety Report 9924200 (Version 1)
Quarter: 2014Q1

REPORT INFORMATION
  Report Type: Spontaneous
  Country: US (occurrence: US)
  Receive Date: 20140226
  Receipt Date: 20140226
  Transmission Date: 20141002
  Serious: No
  Sender: FDA-Public Use
  Company Number: US-BIOGENIDEC-2014BI017126

PATIENT
  Age: 62 Year
  Sex: Male

DRUGS (4)
  1. AVONEX [Suspect]
     Indication: MULTIPLE SCLEROSIS
     Route: 030
  2. AVONEX [Suspect]
     Indication: MULTIPLE SCLEROSIS
     Route: 030
     Dates: start: 20110617, end: 20130422
  3. AVONEX [Suspect]
     Indication: MULTIPLE SCLEROSIS
     Route: 030
     Dates: start: 20140214
  4. TECFIDERA [Concomitant]
     Indication: MULTIPLE SCLEROSIS

REACTIONS (3)
  - Overdose [Recovered/Resolved]
  - Myalgia [Unknown]
  - Influenza like illness [Unknown]
